FAERS Safety Report 9087395 (Version 1)
Quarter: 2013Q1

REPORT INFORMATION
  Report Type: Spontaneous
  Country: US (occurrence: US)
  Receive Date: 20130131
  Receipt Date: 20130131
  Transmission Date: 20140127
  Serious: Yes (Other)
  Sender: FDA-Public Use
  Company Number: US-PFIZER INC-2013032671

PATIENT
  Age: 74 Year
  Sex: Male
  Weight: 79.36 kg

DRUGS (2)
  1. ADVIL [Suspect]
     Dosage: UNK, 1X/DAY
     Route: 048
     Dates: start: 20130124
  2. COUMADINE [Concomitant]
     Dosage: UNK

REACTIONS (4)
  - Dyspnoea [Not Recovered/Not Resolved]
  - Asthma [Not Recovered/Not Resolved]
  - Drug hypersensitivity [Not Recovered/Not Resolved]
  - Increased bronchial secretion [Not Recovered/Not Resolved]
